FAERS Safety Report 7401329-5 (Version None)
Quarter: 2011Q2

REPORT INFORMATION
  Report Type: 
  Country: None (occurrence: None)
  Receive Date: 20110407
  Receipt Date: 20110324
  Transmission Date: 20111010
  Serious: Yes (Hospitalization)
  Sender: FDA-Public Use
  Company Number: CA-GENENTECH-316134

PATIENT
  Sex: Male

DRUGS (2)
  1. PREDNISONE [Concomitant]
     Indication: PRODUCT USED FOR UNKNOWN INDICATION
  2. XOLAIR [Suspect]
     Indication: ASTHMA
     Dosage: 300 MG, 1/MONTH
     Route: 058
     Dates: start: 20061109

REACTIONS (5)
  - HYPERSENSITIVITY [None]
  - DYSPNOEA [None]
  - NASOPHARYNGITIS [None]
  - LIMB DISCOMFORT [None]
  - LOWER RESPIRATORY TRACT INFECTION VIRAL [None]
